FAERS Safety Report 14807086 (Version 5)
Quarter: 2018Q4

REPORT INFORMATION
  Report Type: Spontaneous
  Country: US (occurrence: US)
  Receive Date: 20180425
  Receipt Date: 20181211
  Transmission Date: 20190204
  Serious: Yes (Other)
  Sender: FDA-Public Use
  Company Number: US-ROCHE-2090613

PATIENT
  Age: 51 Year
  Sex: Female
  Weight: 42.75 kg

DRUGS (5)
  1. OCREVUS [Suspect]
     Active Substance: OCRELIZUMAB
     Indication: PRIMARY PROGRESSIVE MULTIPLE SCLEROSIS
     Dosage: ON 27/OCT/2017, SECOND HALF DOSE RECEIVED.
     Route: 041
     Dates: start: 20171013
  2. ALA (UNITED STATES) [Concomitant]
     Indication: MULTIPLE SCLEROSIS
     Route: 048
  3. OCREVUS [Suspect]
     Active Substance: OCRELIZUMAB
     Route: 042
     Dates: start: 201804
  4. BACLOFEN. [Concomitant]
     Active Substance: BACLOFEN
     Indication: MUSCLE SPASTICITY
     Dosage: FOR 15 YEARS FOR SPASTICITY FROM MULTIPLE SCLEROSIS
     Route: 048
  5. MIRENA [Concomitant]
     Active Substance: LEVONORGESTREL
     Route: 065
     Dates: start: 2014

REACTIONS (2)
  - Breast cancer [Unknown]
  - Alopecia [Not Recovered/Not Resolved]

NARRATIVE: CASE EVENT DATE: 20180204
